FAERS Safety Report 24227846 (Version 1)
Quarter: 2024Q3

REPORT INFORMATION
  Report Type: Spontaneous
  Country: US (occurrence: None)
  Receive Date: 20240819
  Receipt Date: 20240819
  Transmission Date: 20241017
  Serious: Yes (Hospitalization)
  Sender: Public
  Company Number: None

PATIENT
  Sex: Female

DRUGS (13)
  1. CABENUVA [Suspect]
     Active Substance: CABOTEGRAVIR\RILPIVIRINE
     Indication: Product used for unknown indication
     Dosage: OTHER FREQUENCY : Q 2 MONTHS;?
     Route: 058
     Dates: start: 20220519
  2. ALBUTEROL HFA INH [Concomitant]
  3. ALENDRONATE [Concomitant]
     Active Substance: ALENDRONATE SODIUM
  4. ANORO ELLIPTA [Concomitant]
     Active Substance: UMECLIDINIUM BROMIDE\VILANTEROL TRIFENATATE
  5. DALIRESP [Concomitant]
     Active Substance: ROFLUMILAST
  6. DAPSONE [Concomitant]
     Active Substance: DAPSONE
  7. DILTIAZEM [Concomitant]
     Active Substance: DILTIAZEM
  8. DULCOLAX [Concomitant]
  9. ENSURE CHOCOLATE LIQUID [Concomitant]
  10. MARINOL [Concomitant]
     Active Substance: DRONABINOL
  11. MONTELUKAST [Concomitant]
     Active Substance: MONTELUKAST SODIUM
  12. PULMICORT TURBUHALER [Concomitant]
     Active Substance: BUDESONIDE
  13. TRELEGY ELLIPTA [Concomitant]
     Active Substance: FLUTICASONE FUROATE\UMECLIDINIUM BROMIDE\VILANTEROL TRIFENATATE

REACTIONS (1)
  - Cardiac arrest [None]
